FAERS Safety Report 13990393 (Version 4)
Quarter: 2020Q4

REPORT INFORMATION
  Report Type: Spontaneous
  Country: US (occurrence: US)
  Receive Date: 20170920
  Receipt Date: 20201217
  Transmission Date: 20210113
  Serious: No
  Sender: FDA-Public Use
  Company Number: US-009507513-1709USA007491

PATIENT
  Sex: Female

DRUGS (3)
  1. GANIRELIX ACETATE INJECTION [Suspect]
     Active Substance: GANIRELIX ACETATE
     Indication: INFERTILITY FEMALE
     Dosage: 250 MICROGRAM, DAILY
     Route: 058
     Dates: start: 20170823
  2. FOLLISTIM [Suspect]
     Active Substance: FOLLITROPIN
     Indication: INFERTILITY FEMALE
     Dosage: AS DIRECTED, DAILY
     Route: 058
     Dates: start: 20160805
  3. FOLLISTIM [Suspect]
     Active Substance: FOLLITROPIN
     Dosage: 37.5 TO 600 U, DAILY
     Route: 058
     Dates: start: 20170823

REACTIONS (5)
  - Injection site erythema [Recovered/Resolved]
  - Product confusion [Unknown]
  - Incorrect dose administered [Unknown]
  - Injection site pruritus [Unknown]
  - Injection site irritation [Recovered/Resolved]

NARRATIVE: CASE EVENT DATE: 2017
